FAERS Safety Report 22862237 (Version 2)
Quarter: 2023Q4

REPORT INFORMATION
  Report Type: Spontaneous
  Country: JP (occurrence: JP)
  Receive Date: 20230824
  Receipt Date: 20231222
  Transmission Date: 20240110
  Serious: Yes (Other)
  Sender: FDA-Public Use
  Company Number: JP-BAYER-2023A119322

PATIENT
  Age: 8 Decade
  Sex: Female

DRUGS (4)
  1. STIVARGA [Suspect]
     Active Substance: REGORAFENIB
     Indication: Colon cancer
     Dosage: DAILY DOSE 80 MG
     Dates: start: 202305
  2. STIVARGA [Suspect]
     Active Substance: REGORAFENIB
     Indication: NTRK gene fusion cancer
  3. VITRAKVI [Suspect]
     Active Substance: LAROTRECTINIB
     Indication: Colon cancer
     Dosage: DAILY DOSE 200 MG
     Dates: start: 2023
  4. VITRAKVI [Suspect]
     Active Substance: LAROTRECTINIB
     Indication: NTRK gene fusion cancer

REACTIONS (7)
  - Colon cancer [Not Recovered/Not Resolved]
  - Hypertension [None]
  - Fatigue [None]
  - Fatigue [None]
  - Fatigue [None]
  - Off label use [None]
  - Incorrect product administration duration [None]

NARRATIVE: CASE EVENT DATE: 20230101
